FAERS Safety Report 9517966 (Version 1)
Quarter: 2013Q1

REPORT INFORMATION
  Report Type: Spontaneous
  Country: US (occurrence: None)
  Receive Date: 20130305
  Receipt Date: 20130305
  Transmission Date: 20140127
  Serious: Yes (Other)
  Sender: FDA-Public Use
  Company Number: 163-21880-12041127

PATIENT
  Age: 65 Year
  Sex: Male
  Weight: 83.46 kg

DRUGS (4)
  1. REVLIMID [Suspect]
     Indication: PLASMA CELL MYELOMA
     Dosage: 25 MG, X 21 DAYS, PO
     Route: 048
     Dates: start: 20120405, end: 20120409
  2. DECADRON [Concomitant]
  3. FAMVIR (FAMCICLOVIR) (UNKNOWN) [Concomitant]
  4. ZOMETA (ZOLEDRONIC ACID) (UNKNOWN) [Concomitant]

REACTIONS (6)
  - Loss of consciousness [None]
  - Swelling [None]
  - Rash [None]
  - Erythema [None]
  - Pruritus generalised [None]
  - Burning sensation [None]
